FAERS Safety Report 17423466 (Version 1)
Quarter: 2020Q1

REPORT INFORMATION
  Report Type: Spontaneous
  Country: GB (occurrence: GB)
  Receive Date: 20200217
  Receipt Date: 20200217
  Transmission Date: 20200409
  Serious: No
  Sender: FDA-Public Use
  Company Number: GB-ALKEM LABORATORIES LIMITED-GB-ALKEM-2019-07183

PATIENT
  Age: 35 Year
  Sex: Female
  Weight: 76 kg

DRUGS (18)
  1. LANSOPRAZOLE. [Concomitant]
     Active Substance: LANSOPRAZOLE
     Indication: ILL-DEFINED DISORDER
     Dosage: UNKNOWN, (TAKE ONE ONCE DAILY)
     Route: 065
     Dates: start: 20180925
  2. MIRTAZAPINE. [Concomitant]
     Active Substance: MIRTAZAPINE
     Indication: ILL-DEFINED DISORDER
     Dosage: UNKNOWN, (TAKE ONE AT BEDTIME)
     Route: 065
     Dates: start: 20180925
  3. TRIMETHOPRIM. [Concomitant]
     Active Substance: TRIMETHOPRIM
     Indication: ILL-DEFINED DISORDER
     Dosage: UNKNOWN, (TAKE ONE TWICE DAILY FOR 7 DAYS)
     Route: 065
     Dates: start: 20190326, end: 20190402
  4. CEPHALEXIN. [Suspect]
     Active Substance: CEPHALEXIN
     Indication: ILL-DEFINED DISORDER
     Dosage: UNKNOWN (TAKE ONE 4 TIMES/DAY)
     Route: 065
     Dates: start: 20190513
  5. CLARITHROMYCIN. [Concomitant]
     Active Substance: CLARITHROMYCIN
     Indication: ILL-DEFINED DISORDER
     Dosage: UNKNOWN, (TAKE ONE EVERY 12 HOURS FOR 7 DAYS)
     Route: 065
     Dates: start: 20190514
  6. NAPROXEN. [Concomitant]
     Active Substance: NAPROXEN
     Indication: ILL-DEFINED DISORDER
     Dosage: UNKNOWN, (TAKE ONE TWICE A DAY WHEN REQUIRED)
     Route: 065
     Dates: start: 20190429, end: 20190513
  7. GABAPENTIN. [Concomitant]
     Active Substance: GABAPENTIN
     Indication: ILL-DEFINED DISORDER
     Dosage: UNKNOWN, (TAKE ONE THREE TIMES DAILY)
     Route: 065
     Dates: start: 20180925
  8. AMITRIPTYLINE HYDROCHLORIDE. [Concomitant]
     Active Substance: AMITRIPTYLINE HYDROCHLORIDE
     Indication: ILL-DEFINED DISORDER
     Dosage: UNKNOWN, (TAKE ONE TABLET AT NIGHT)
     Route: 065
     Dates: start: 20180925
  9. ERYTHROMYCIN. [Concomitant]
     Active Substance: ERYTHROMYCIN
     Indication: ILL-DEFINED DISORDER
     Dosage: UNKNOWN, (TAKE ONE 4 TIMES/DAY)
     Route: 065
     Dates: start: 20190429, end: 20190506
  10. SIRDUPLA [Concomitant]
     Active Substance: FLUTICASONE PROPIONATE\SALMETEROL XINAFOATE
     Indication: ILL-DEFINED DISORDER
     Dosage: UNKNOWN, (INHALE 2 DOSES TWICE DAILY)
     Route: 065
     Dates: start: 20181105
  11. ACIDEX [Concomitant]
     Active Substance: CALCIUM CARBONATE\SODIUM ALGINATE\SODIUM BICARBONATE
     Indication: ILL-DEFINED DISORDER
     Dosage: UNKNOWN, (TAKE 10-20MLS AFTER MEALS AND AT BEDTIME AS REQUESTED)
     Route: 065
     Dates: start: 20190222, end: 20190306
  12. SERTRALINE [Concomitant]
     Active Substance: SERTRALINE HYDROCHLORIDE
     Indication: ILL-DEFINED DISORDER
     Dosage: UNKNOWN, (TAKE ONE DAILY)
     Route: 065
     Dates: start: 20190326, end: 20190423
  13. THIAMINE. [Concomitant]
     Active Substance: THIAMINE
     Indication: ILL-DEFINED DISORDER
     Dosage: UNKNOWN, (TAKE ONE DAILY)
     Route: 065
     Dates: start: 20190414
  14. CYCLIZINE [Concomitant]
     Active Substance: CYCLIZINE
     Indication: ILL-DEFINED DISORDER
     Dosage: UNKNOWN, (TAKE ONE UP TO THREE TIMES A DAY AS NEEDED FOR )
     Route: 065
     Dates: start: 20190307, end: 20190317
  15. DIAZEPAM. [Concomitant]
     Active Substance: DIAZEPAM
     Indication: ILL-DEFINED DISORDER
     Dosage: UNKNOWN, (TAKE ONE THREE TIMES DAILY)
     Route: 065
     Dates: start: 20190221, end: 20190224
  16. DOMPERIDONE [Concomitant]
     Active Substance: DOMPERIDONE
     Indication: ILL-DEFINED DISORDER
     Dosage: UNKNOWN, (TAKE ONE 3 TIMES DAILY WHEN REQUIRED FOR NAUSEA...)
     Route: 065
     Dates: start: 20190222, end: 20190322
  17. PROCHLORPERAZINE. [Concomitant]
     Active Substance: PROCHLORPERAZINE
     Indication: ILL-DEFINED DISORDER
     Dosage: UNKNOWN, (USE TWICE DAILY)
     Route: 065
     Dates: start: 20190328, end: 20190404
  18. SALBUTAMOL [Concomitant]
     Active Substance: ALBUTEROL
     Indication: ILL-DEFINED DISORDER
     Dosage: UNKNOWN, (INHALE 2 DOSES AS NEEDED)
     Route: 065
     Dates: start: 20181105

REACTIONS (1)
  - Vomiting [Recovering/Resolving]

NARRATIVE: CASE EVENT DATE: 20190514
